FAERS Safety Report 7766065-4 (Version None)
Quarter: 2011Q3

REPORT INFORMATION
  Report Type: 
  Country: None (occurrence: None)
  Receive Date: 20110921
  Receipt Date: 20110916
  Transmission Date: 20111222
  Serious: Yes (Other)
  Sender: FDA-Public Use
  Company Number: US-AMGEN-USASP2011001063

PATIENT
  Sex: Male
  Weight: 123.6 kg

DRUGS (6)
  1. NPLATE [Suspect]
     Indication: IDIOPATHIC THROMBOCYTOPENIC PURPURA
     Dosage: 330 MUG, QWK
     Dates: start: 20091202, end: 20110126
  2. PREDNISONE [Concomitant]
     Indication: IDIOPATHIC THROMBOCYTOPENIC PURPURA
     Dosage: 40 MG, UNK
     Dates: start: 19981221
  3. TRICOR [Concomitant]
  4. IMMUNOGLOBULINS [Concomitant]
     Indication: IDIOPATHIC THROMBOCYTOPENIC PURPURA
     Dosage: UNK
     Dates: start: 19981209
  5. DEXAMETHASONE [Concomitant]
  6. DANAZOL [Concomitant]
     Indication: IDIOPATHIC THROMBOCYTOPENIC PURPURA
     Dosage: UNK MUG/KG, UNK
     Dates: start: 19981221

REACTIONS (1)
  - THERAPEUTIC RESPONSE DECREASED [None]
